FAERS Safety Report 4958298-7 (Version None)
Quarter: 2006Q1

REPORT INFORMATION
  Report Type: 
  Country: None (occurrence: None)
  Receive Date: 20060324
  Receipt Date: 20060308
  Transmission Date: 20060701
  Serious: Yes (Hospitalization, Other)
  Sender: FDA-Public Use
  Company Number: FR200603003895

PATIENT
  Age: 74 Year
  Sex: Female

DRUGS (5)
  1. FORTEO [Suspect]
     Indication: OSTEOPOROSIS
     Dosage: 20UG, DAILY (1/D), SUBCUTANEOUS
     Route: 058
     Dates: start: 20050202
  2. FORTEO [Concomitant]
  3. INIPOMP (PANTOPRAZOLE) [Concomitant]
  4. AMLODIPINE BESYLATE [Concomitant]
  5. HYPERIUM (RILMENIDINE) TABLET [Concomitant]

REACTIONS (7)
  - BLOOD PRESSURE INCREASED [None]
  - GASTROENTERITIS [None]
  - GENERAL PHYSICAL HEALTH DETERIORATION [None]
  - HEADACHE [None]
  - HIP ARTHROPLASTY [None]
  - NOSOCOMIAL INFECTION [None]
  - WEIGHT DECREASED [None]
